FAERS Safety Report 19237670 (Version 1)
Quarter: 2021Q2

REPORT INFORMATION
  Report Type: Spontaneous
  Country: US (occurrence: US)
  Receive Date: 20210510
  Receipt Date: 20210510
  Transmission Date: 20210717
  Serious: Yes (Other)
  Sender: FDA-Public Use
  Company Number: US-SYNEX-T202102003

PATIENT
  Age: 32 Year
  Sex: Male

DRUGS (1)
  1. INOMAX [Suspect]
     Active Substance: NITRIC OXIDE
     Indication: RIGHT VENTRICULAR DYSFUNCTION
     Dosage: UNK (INHALATION)
     Route: 055

REACTIONS (4)
  - Bacterial sepsis [Recovered/Resolved]
  - Tracheostomy [Recovered/Resolved]
  - Product use in unapproved indication [Unknown]
  - Product use issue [Unknown]
